FAERS Safety Report 16938836 (Version 1)
Quarter: 2019Q4

REPORT INFORMATION
  Report Type: Spontaneous
  Country: US (occurrence: US)
  Receive Date: 20190828
  Receipt Date: 20190828
  Transmission Date: 20200122
  Serious: Yes (Other)
  Sender: FDA-Public Use
  Company Number: None

PATIENT
  Age: 75 Year
  Sex: Male
  Weight: 83.91 kg

DRUGS (7)
  1. LOTREL [Concomitant]
     Active Substance: AMLODIPINE BESYLATE\BENAZEPRIL HYDROCHLORIDE
  2. LIPITOR [Concomitant]
     Active Substance: ATORVASTATIN CALCIUM
  3. NITRO [Concomitant]
     Active Substance: NITROGLYCERIN
  4. PACERONE [Suspect]
     Active Substance: AMIODARONE HYDROCHLORIDE
     Indication: IMPLANTABLE DEFIBRILLATOR INSERTION
     Route: 048
     Dates: start: 20180930, end: 20190510
  5. PACERONE [Suspect]
     Active Substance: AMIODARONE HYDROCHLORIDE
     Indication: CARDIAC ARREST
     Route: 048
     Dates: start: 20180930, end: 20190510
  6. PACERONE [Suspect]
     Active Substance: AMIODARONE HYDROCHLORIDE
     Indication: CARDIAC PACEMAKER INSERTION
     Route: 048
     Dates: start: 20180930, end: 20190510
  7. CARVEDILOL. [Concomitant]
     Active Substance: CARVEDILOL

REACTIONS (4)
  - Blindness unilateral [None]
  - Macular degeneration [None]
  - Toxic optic neuropathy [None]
  - Colour blindness [None]

NARRATIVE: CASE EVENT DATE: 20190510
